FAERS Safety Report 5637857-2 (Version None)
Quarter: 2008Q1

REPORT INFORMATION
  Report Type: 
  Country: None (occurrence: None)
  Receive Date: 20080131
  Receipt Date: 20071105
  Transmission Date: 20080703
  Serious: No
  Sender: FDA-Public Use
  Company Number: 163-21880-07110256

PATIENT
  Age: 67 Year
  Sex: Male

DRUGS (1)
  1. REVLIMID [Suspect]
     Indication: MULTIPLE MYELOMA
     Dosage: 25 MG, DAILY AT BEDTIME X21 DAYS ON, 7DAYS OFF, ORAL
     Route: 048
     Dates: start: 20061005

REACTIONS (2)
  - DYSURIA [None]
  - KIDNEY INFECTION [None]
